FAERS Safety Report 9585695 (Version 4)
Quarter: 2013Q4

REPORT INFORMATION
  Report Type: Report from Study
  Country: US (occurrence: US)
  Receive Date: 20131003
  Receipt Date: 20131120
  Transmission Date: 20140711
  Serious: Yes (Death, Other)
  Sender: FDA-Public Use
  Company Number: US-ROCHE-1276745

PATIENT
  Age: 68 Year
  Sex: Female

DRUGS (24)
  1. AVASTIN [Suspect]
     Indication: RECTAL CANCER
     Dosage: INTRAVENOUS PIGGYBACK (IVPB)
     Route: 042
     Dates: start: 20101222
  2. AVASTIN [Suspect]
     Indication: HEPATIC CANCER
     Dosage: INTRAVENOUS PIGGYBACK (IVPB)
     Route: 042
     Dates: start: 20101229
  3. AVASTIN [Suspect]
     Dosage: INTRAVENOUS PIGGYBACK (IVPB)
     Route: 042
     Dates: start: 20110105
  4. 5-FU [Concomitant]
     Dosage: WEEKLY FOR 3 WEEKS THEN 1 WEEK OFF, IVP DURING LEUKOVORIN INFUSION
     Route: 042
     Dates: start: 20101222
  5. 5-FU [Concomitant]
     Dosage: WEEKLY FOR 3 WEEKS THEN 1 WEEK OFF, IVP
     Route: 042
     Dates: start: 20101229
  6. 5-FU [Concomitant]
     Dosage: WEEKLY FOR 3 WEEKS THEN 1 WEEK OFF, IVP
     Route: 042
     Dates: start: 20110105
  7. CAMPTOSAR [Concomitant]
     Dosage: WEEKLY FOR 3 WEEKS THEN 1 WEEK OFF, IVPB
     Route: 042
     Dates: start: 20101222
  8. CAMPTOSAR [Concomitant]
     Dosage: WEEKLY FOR 3 WEEKS THEN 1 WEEK OFF, IVPB
     Route: 042
     Dates: start: 20101229
  9. CAMPTOSAR [Concomitant]
     Dosage: WEEKLY FOR 3 WEEKS THEN 1 WEEK OFF, IVPB
     Route: 042
     Dates: start: 20110105
  10. LEUCOVORIN [Concomitant]
     Dosage: WEEKLY FOR 3 WEEKS THEN 1 WEEK OFF, IVPB
     Route: 042
     Dates: start: 20101222
  11. LEUCOVORIN [Concomitant]
     Dosage: WEEKLY FOR 3 WEEKS THEN 1 WEEK OFF, IVPB
     Route: 042
     Dates: start: 20101229
  12. LEUCOVORIN [Concomitant]
     Dosage: WEEKLY FOR 3 WEEKS THEN 1 WEEK OFF, IVPB
     Route: 042
     Dates: start: 20110105
  13. BENADRYL (UNITED STATES) [Concomitant]
     Dosage: INTRAVENOUS PIGGYBACK (IVPB)
     Route: 042
     Dates: start: 20101222
  14. BENADRYL (UNITED STATES) [Concomitant]
     Dosage: INTRAVENOUS PIGGYBACK (IVPB)
     Route: 042
     Dates: start: 20101229
  15. BENADRYL (UNITED STATES) [Concomitant]
     Dosage: INTRAVENOUS PIGGYBACK (IVPB)
     Route: 042
     Dates: start: 20110105
  16. DECADRON [Concomitant]
     Dosage: INTRAVENOUS PIGGYBACK (IVPB)
     Route: 042
     Dates: start: 20101222
  17. DECADRON [Concomitant]
     Dosage: INTRAVENOUS PIGGYBACK (IVPB)
     Route: 042
     Dates: start: 20101229
  18. DECADRON [Concomitant]
     Dosage: INTRAVENOUS PIGGYBACK (IVPB)
     Route: 042
     Dates: start: 20110105
  19. ALOXI [Concomitant]
     Dosage: INTRAVENOUS PIGGYBACK (IVPB)
     Route: 042
     Dates: start: 20101222
  20. ALOXI [Concomitant]
     Dosage: INTRAVENOUS PIGGYBACK (IVPB)
     Route: 042
     Dates: start: 20101229
  21. ALOXI [Concomitant]
     Dosage: INTRAVENOUS PIGGYBACK (IVPB)
     Route: 042
     Dates: start: 20110105
  22. ATROPINE SULPHATE [Concomitant]
     Dosage: INTRAVENOUS PIGGYBACK (IVPB)
     Route: 042
     Dates: start: 20101222
  23. ATROPINE SULPHATE [Concomitant]
     Dosage: INTRAVENOUS PIGGYBACK (IVPB)
     Route: 042
     Dates: start: 20101229
  24. ATROPINE SULPHATE [Concomitant]
     Dosage: INTRAVENOUS PIGGYBACK (IVPB)
     Route: 042
     Dates: start: 20110105

REACTIONS (8)
  - Colon cancer metastatic [Fatal]
  - Aplastic anaemia [Unknown]
  - Gastrointestinal haemorrhage [Unknown]
  - Neutropenia [Unknown]
  - Nausea [Unknown]
  - Vomiting [Unknown]
  - Wound decomposition [Unknown]
  - Neutropenia [Unknown]
